FAERS Safety Report 8425564-2 (Version None)
Quarter: 2012Q2

REPORT INFORMATION
  Report Type: 
  Country: None (occurrence: None)
  Receive Date: 20120531
  Receipt Date: 20120525
  Transmission Date: 20120825
  Serious: Yes (Death, Life-Threatening)
  Sender: FDA-Public Use
  Company Number: 2012SP011888

PATIENT
  Age: 70 Year
  Sex: Male

DRUGS (12)
  1. MELPHALAN HYDROCHLORIDE [Suspect]
     Indication: PRODUCT USED FOR UNKNOWN INDICATION
     Dosage: PO
     Route: 048
     Dates: end: 20111117
  2. JONOSTERIL [Concomitant]
  3. TILIDIN (VALORON N /00628301/) [Suspect]
     Indication: PRODUCT USED FOR UNKNOWN INDICATION
     Dosage: 208 MG; PO
     Route: 048
     Dates: end: 20111121
  4. DOMINAL (PROTHIPENDYL HYDROCHLORIDE) [Suspect]
     Indication: PRODUCT USED FOR UNKNOWN INDICATION
     Dosage: 40 MG; PO
     Route: 048
     Dates: start: 20111120, end: 20111120
  5. RISPERDAL [Suspect]
     Indication: PRODUCT USED FOR UNKNOWN INDICATION
     Dosage: 1.5 MG; PO, 2 MG; PO
     Route: 048
     Dates: end: 20111117
  6. RISPERDAL [Suspect]
     Indication: PRODUCT USED FOR UNKNOWN INDICATION
     Dosage: 1.5 MG; PO, 2 MG; PO
     Route: 048
     Dates: start: 20111118, end: 20111121
  7. PANTOPRAZOLE [Concomitant]
  8. MIRTAZAPINE [Suspect]
     Indication: PRODUCT USED FOR UNKNOWN INDICATION
     Dosage: 45 MG; PO, 30 MG; PO
     Route: 048
     Dates: start: 20111118, end: 20111121
  9. MIRTAZAPINE [Suspect]
     Indication: PRODUCT USED FOR UNKNOWN INDICATION
     Dosage: 45 MG; PO, 30 MG; PO
     Route: 048
     Dates: end: 20111117
  10. AMLODIPINE [Suspect]
     Indication: PRODUCT USED FOR UNKNOWN INDICATION
     Dosage: 5 MG; PO
     Route: 048
     Dates: end: 20111121
  11. METFORMIN HCL [Concomitant]
  12. IBUPROFEN [Concomitant]

REACTIONS (5)
  - UNRESPONSIVE TO STIMULI [None]
  - INSOMNIA [None]
  - INCREASED UPPER AIRWAY SECRETION [None]
  - HALLUCINATION, VISUAL [None]
  - PNEUMONIA [None]
